FAERS Safety Report 8336548-7 (Version None)
Quarter: 2012Q2

REPORT INFORMATION
  Report Type: 
  Country: None (occurrence: None)
  Receive Date: 20120504
  Receipt Date: 20120427
  Transmission Date: 20120825
  Serious: Yes (Other)
  Sender: FDA-Public Use
  Company Number: CA-CELGENEUS-028-C5013-11050576

PATIENT
  Sex: Male
  Weight: 78.7 kg

DRUGS (12)
  1. LENALIDOMIDE [Suspect]
     Dosage: 10 MILLIGRAM
     Route: 048
     Dates: start: 20110420, end: 20110504
  2. HYDROXYZINE [Concomitant]
     Route: 048
     Dates: start: 20100101
  3. GLAXAL BASE [Concomitant]
     Dosage: 1 APPLICATION
     Route: 061
     Dates: start: 20101216
  4. VALTREX [Concomitant]
     Indication: INFECTION PROPHYLAXIS
     Dosage: 1000 MILLIGRAM
     Route: 048
     Dates: start: 20100201
  5. NIASPAN [Concomitant]
     Dosage: 1000 MILLIGRAM
     Route: 048
     Dates: start: 20100301
  6. LENALIDOMIDE [Suspect]
     Dosage: 10 MILLIGRAM
     Route: 048
     Dates: start: 20101006
  7. METOPROLOL TARTRATE [Concomitant]
     Indication: HYPERTENSION
     Dosage: 25 MILLIGRAM
     Route: 048
     Dates: start: 20051201
  8. ATACAND [Concomitant]
     Indication: HYPERTENSION
     Dosage: 8 MILLIGRAM
     Route: 048
     Dates: start: 20100301
  9. ASPIRIN [Concomitant]
     Indication: CARDIOVASCULAR EVENT PROPHYLAXIS
     Dosage: 80 MILLIGRAM
     Route: 048
     Dates: start: 20051201
  10. ALLOPURINOL [Concomitant]
     Indication: PROPHYLAXIS
     Dosage: 30 MILLIGRAM
     Route: 048
     Dates: start: 20101006, end: 20101130
  11. LIPITOR [Concomitant]
     Dosage: 10 MILLIGRAM
     Route: 048
     Dates: start: 20051201
  12. ALLOPURINOL [Concomitant]
     Dosage: 30 MILLIGRAM
     Route: 048
     Dates: start: 20110324, end: 20110420

REACTIONS (1)
  - PROSTATE CANCER [None]
